FAERS Safety Report 5953267-2 (Version None)
Quarter: 2008Q4

REPORT INFORMATION
  Report Type: 
  Country: None (occurrence: None)
  Receive Date: 20081114
  Receipt Date: 20081107
  Transmission Date: 20090506
  Serious: Yes (Other)
  Sender: FDA-Public Use
  Company Number: PHHY2008JP25713

PATIENT
  Sex: Female

DRUGS (10)
  1. NEORAL [Suspect]
     Indication: PSORIASIS
     Dosage: 300 MG/DAY
     Route: 048
     Dates: start: 20070807, end: 20070811
  2. NEORAL [Suspect]
     Indication: PRURITUS
     Dosage: 100 MG, BID
     Route: 048
     Dates: start: 20070811, end: 20070903
  3. NEORAL [Suspect]
     Dosage: 190 MG/DAY
     Route: 048
     Dates: start: 20070904, end: 20071002
  4. NEORAL [Suspect]
     Dosage: 150 MG/DAY
     Route: 048
     Dates: start: 20071002
  5. NEORAL [Suspect]
     Dosage: 40 MG/DAY
     Route: 048
     Dates: start: 20080508, end: 20080519
  6. NEORAL [Suspect]
     Dosage: 100 MG/DAY
     Route: 048
     Dates: start: 20080520, end: 20080526
  7. NEORAL [Suspect]
     Dosage: 150 MG/DAY
     Route: 048
     Dates: start: 20080527, end: 20080701
  8. NEORAL [Suspect]
     Dosage: 140 MG/DAY
     Route: 048
     Dates: start: 20080702
  9. NEORAL [Suspect]
     Dosage: 70 MG/DAY
     Route: 048
     Dates: start: 20081021
  10. STEROIDS NOS [Concomitant]
     Indication: PRURITUS
     Dosage: UNK
     Route: 048

REACTIONS (4)
  - DIZZINESS [None]
  - EXTRAPYRAMIDAL DISORDER [None]
  - GAIT DISTURBANCE [None]
  - PRURITUS [None]
